FAERS Safety Report 10693612 (Version 1)
Quarter: 2015Q1

REPORT INFORMATION
  Report Type: Spontaneous
  Country: US (occurrence: US)
  Receive Date: 20150106
  Receipt Date: 20150106
  Transmission Date: 20150721
  Serious: Yes (Hospitalization)
  Sender: FDA-Public Use
  Company Number: PHHY2014US169340

PATIENT
  Age: 56 Year
  Sex: Female

DRUGS (3)
  1. HEPARIN [Suspect]
     Active Substance: HEPARIN SODIUM
     Indication: PROPHYLAXIS
     Route: 058
  2. HEPARIN [Suspect]
     Active Substance: HEPARIN SODIUM
     Dosage: UNK
     Route: 040
  3. HEPARIN [Suspect]
     Active Substance: HEPARIN SODIUM
     Dosage: UNK
     Route: 041

REACTIONS (9)
  - Flushing [Unknown]
  - Thrombocytopenia [Recovering/Resolving]
  - Embolism venous [Unknown]
  - Pulmonary embolism [Unknown]
  - Blood pressure decreased [Unknown]
  - Dyspnoea [Unknown]
  - Cardio-respiratory arrest [Unknown]
  - Amnesia [Recovered/Resolved]
  - Anaphylactoid reaction [Unknown]
